FAERS Safety Report 17150620 (Version 1)
Quarter: 2019Q4

REPORT INFORMATION
  Report Type: Spontaneous
  Country: US (occurrence: US)
  Receive Date: 20191212
  Receipt Date: 20191212
  Transmission Date: 20200122
  Serious: Yes (Other)
  Sender: FDA-Public Use
  Company Number: None

PATIENT
  Age: 44 Year
  Sex: Female
  Weight: 58.97 kg

DRUGS (3)
  1. BUPRENORPHINE NALOXONE SL STRIPS [Concomitant]
     Dates: start: 20191210
  2. BUPRENORPHINE AND NALOXONE SUBLINGUAL FILM [Suspect]
     Active Substance: BUPRENORPHINE HYDROCHLORIDE\NALOXONE HYDROCHLORIDE
     Indication: DRUG DEPENDENCE
     Route: 060
     Dates: start: 20191210, end: 20191212
  3. DR REDDY BUPRENORPHINE/NALOXONE [Concomitant]
     Dates: start: 20191210, end: 20191212

REACTIONS (7)
  - Confusional state [None]
  - Bedridden [None]
  - Tachycardia [None]
  - Lethargy [None]
  - Nausea [None]
  - Product substitution issue [None]
  - Migraine [None]

NARRATIVE: CASE EVENT DATE: 20191210
